FAERS Safety Report 12968750 (Version 1)
Quarter: 2016Q4

REPORT INFORMATION
  Report Type: Spontaneous
  Country: CA (occurrence: CA)
  Receive Date: 20161121
  Receipt Date: 20161121
  Transmission Date: 20170207
  Serious: No
  Sender: FDA-Public Use
  Company Number: None

PATIENT
  Age: 71 Year
  Sex: Male
  Weight: 81.72 kg

DRUGS (7)
  1. ADALAT CC [Suspect]
     Active Substance: NIFEDIPINE
     Indication: HYPERTENSION
     Route: 048
     Dates: start: 201402, end: 20160404
  2. MYRBETRIQ [Concomitant]
     Active Substance: MIRABEGRON
  3. VITAMIN B12 [Concomitant]
     Active Substance: CYANOCOBALAMIN
  4. ASA [Concomitant]
     Active Substance: ASPIRIN
  5. MYIAN-PAROXETINE [Concomitant]
  6. VITAMIN D3 [Concomitant]
     Active Substance: CHOLECALCIFEROL
  7. DICLOFENAC SOD/MISOPROSTO [Concomitant]

REACTIONS (3)
  - Libido decreased [None]
  - Sexual dysfunction [None]
  - Erectile dysfunction [None]

NARRATIVE: CASE EVENT DATE: 20140219
